FAERS Safety Report 11990102 (Version 2)
Quarter: 2016Q1

REPORT INFORMATION
  Report Type: Spontaneous
  Country: US (occurrence: US)
  Receive Date: 20160202
  Receipt Date: 20160317
  Transmission Date: 20160526
  Serious: Yes (Hospitalization)
  Sender: FDA-Public Use
  Company Number: US-BAXTER-2016BAX002154

PATIENT
  Sex: Male
  Weight: 68 kg

DRUGS (1)
  1. DIANEAL LOW CALCIUM PERITONEAL DIALYSIS SOLUTION WITH DEXTROSE [Suspect]
     Active Substance: CALCIUM CHLORIDE\DEXTROSE\MAGNESIUM CHLORIDE\SODIUM CHLORIDE\SODIUM LACTATE
     Indication: PERITONEAL DIALYSIS
     Route: 033

REACTIONS (7)
  - Procedural pain [Not Recovered/Not Resolved]
  - Muscle spasms [Unknown]
  - Ammonia increased [Unknown]
  - End stage renal disease [Unknown]
  - Hepatic cirrhosis [Unknown]
  - Loss of consciousness [Unknown]
  - Abdominal distension [Recovered/Resolved]
